FAERS Safety Report 5854895-5 (Version None)
Quarter: 2008Q3

REPORT INFORMATION
  Report Type: 
  Country: None (occurrence: None)
  Receive Date: 20080822
  Receipt Date: 20080228
  Transmission Date: 20090109
  Serious: No
  Sender: FDA-Public Use
  Company Number: US-ABBOTT-08P-163-0440423-00

PATIENT
  Sex: Female
  Weight: 57.204 kg

DRUGS (3)
  1. SYNTHROID [Suspect]
     Indication: HYPOTHYROIDISM
     Route: 048
     Dates: start: 20070501, end: 20070501
  2. SYNTHROID [Suspect]
     Route: 048
     Dates: start: 20070501, end: 20080101
  3. SYNTHROID [Suspect]
     Route: 048
     Dates: start: 20080101

REACTIONS (5)
  - HEADACHE [None]
  - NAUSEA [None]
  - PALPITATIONS [None]
  - THYROID FUNCTION TEST ABNORMAL [None]
  - VISUAL IMPAIRMENT [None]
